FAERS Safety Report 6000351-3 (Version None)
Quarter: 2008Q4

REPORT INFORMATION
  Report Type: 
  Country: None (occurrence: None)
  Receive Date: 20081215
  Receipt Date: 20081110
  Transmission Date: 20090506
  Serious: No
  Sender: FDA-Public Use
  Company Number: US-BAYER-200814744BCC

PATIENT
  Age: 11 Month
  Weight: 9.979 kg

DRUGS (1)
  1. ALEVE [Suspect]

REACTIONS (1)
  - NO ADVERSE EVENT [None]
